FAERS Safety Report 14546265 (Version 1)
Quarter: 2018Q1

REPORT INFORMATION
  Report Type: Spontaneous
  Country: US (occurrence: US)
  Receive Date: 20180219
  Receipt Date: 20180219
  Transmission Date: 20180509
  Serious: Yes (Hospitalization, Other)
  Sender: FDA-Public Use
  Company Number: US-JNJFOC-20180211741

PATIENT
  Age: 82 Year
  Sex: Female

DRUGS (6)
  1. TRAMADOL. [Concomitant]
     Active Substance: TRAMADOL
     Indication: PAIN
     Dosage: AS NEEDED
     Route: 065
     Dates: start: 201612
  2. ACETAMINOPHEN. [Suspect]
     Active Substance: ACETAMINOPHEN
     Route: 065
  3. ACETAMINOPHEN. [Suspect]
     Active Substance: ACETAMINOPHEN
     Indication: PAIN
     Dosage: AS NEEDED, TAKEN HIGH AMOUNTS
     Route: 065
     Dates: start: 201612, end: 201701
  4. LEVOFLOXACIN. [Concomitant]
     Active Substance: LEVOFLOXACIN
     Indication: EOSINOPHILIC PNEUMONIA
     Route: 065
     Dates: start: 201612
  5. LINEZOLID. [Concomitant]
     Active Substance: LINEZOLID
     Indication: EOSINOPHILIC PNEUMONIA
     Route: 065
     Dates: start: 201612
  6. ENOXAPARIN [Concomitant]
     Active Substance: ENOXAPARIN
     Indication: DEEP VEIN THROMBOSIS
     Route: 065
     Dates: start: 201612

REACTIONS (2)
  - Metabolic acidosis [Recovering/Resolving]
  - Overdose [Unknown]
